FAERS Safety Report 7900989-X (Version None)
Quarter: 2011Q4

REPORT INFORMATION
  Report Type: 
  Country: None (occurrence: None)
  Receive Date: 20111108
  Receipt Date: 20111104
  Transmission Date: 20120403
  Serious: Yes (Other)
  Sender: FDA-Public Use
  Company Number: CA-PFIZER INC-2011270626

PATIENT
  Age: 31 Year
  Sex: Female

DRUGS (2)
  1. EFFEXOR XR [Suspect]
     Indication: DEPRESSION
     Dosage: UNK
  2. EFFEXOR XR [Suspect]
     Dosage: 18.75 MG (HALF OF 37.5MG)
     Dates: start: 20110101

REACTIONS (5)
  - DRUG DEPENDENCE [None]
  - EMOTIONAL DISORDER [None]
  - PARAESTHESIA [None]
  - DIZZINESS [None]
  - DRUG ADMINISTRATION ERROR [None]
